FAERS Safety Report 5608966-9 (Version None)
Quarter: 2008Q1

REPORT INFORMATION
  Report Type: 
  Country: None (occurrence: None)
  Receive Date: 20080131
  Receipt Date: 20080121
  Transmission Date: 20080703
  Serious: Yes (Other)
  Sender: FDA-Public Use
  Company Number: US-JNJFOC-20080105063

PATIENT

DRUGS (3)
  1. ASPIRIN [Suspect]
     Indication: CARDIOVASCULAR EVENT PROPHYLAXIS
  2. NAPROXEN [Suspect]
     Indication: OSTEOARTHRITIS
  3. LANSOPRAZOLE [Suspect]
     Indication: PROPHYLAXIS

REACTIONS (1)
  - PALPITATIONS [None]
